FAERS Safety Report 7407381-5 (Version None)
Quarter: 2011Q2

REPORT INFORMATION
  Report Type: 
  Country: None (occurrence: None)
  Receive Date: 20110411
  Receipt Date: 20110330
  Transmission Date: 20111010
  Serious: Yes (Hospitalization, Other)
  Sender: FDA-Public Use
  Company Number: JP-MERCK-1102USA02535

PATIENT
  Age: 54 Year
  Sex: Male

DRUGS (5)
  1. MEDICON [Concomitant]
     Route: 048
     Dates: start: 20110125
  2. AZULEMIC [Concomitant]
     Route: 048
     Dates: start: 20110125, end: 20110127
  3. NOROXIN [Suspect]
     Indication: BRONCHITIS
     Route: 048
     Dates: start: 20110125, end: 20110127
  4. BUFFERIN [Suspect]
     Indication: BRONCHITIS
     Route: 048
     Dates: start: 20110124, end: 20110130
  5. INDOMETHACIN SODIUM [Suspect]
     Indication: BRONCHITIS
     Route: 048
     Dates: start: 20110125, end: 20110127

REACTIONS (3)
  - PLATELET COUNT DECREASED [None]
  - INTERSTITIAL LUNG DISEASE [None]
  - HEPATIC FUNCTION ABNORMAL [None]
